FAERS Safety Report 10357499 (Version 1)
Quarter: 2014Q3

REPORT INFORMATION
  Report Type: Spontaneous
  Country: US (occurrence: None)
  Receive Date: 20140730
  Receipt Date: 20140730
  Transmission Date: 20150326
  Serious: No
  Sender: FDA-Public Use
  Company Number: None

PATIENT
  Age: 79 Year
  Sex: Female
  Weight: 80.29 kg

DRUGS (15)
  1. POTASSIUM [Concomitant]
     Active Substance: POTASSIUM
  2. OXYGEN. [Concomitant]
     Active Substance: OXYGEN
  3. MAGNESIUM [Concomitant]
     Active Substance: MAGNESIUM
  4. OXYBUTYNIN [Concomitant]
     Active Substance: OXYBUTYNIN
  5. GABAPENTIN. [Concomitant]
     Active Substance: GABAPENTIN
  6. VYTORIN [Concomitant]
     Active Substance: EZETIMIBE\SIMVASTATIN
  7. BABY ASPIRIN [Concomitant]
     Active Substance: ASPIRIN
  8. TRAZODONE [Concomitant]
     Active Substance: TRAZODONE HYDROCHLORIDE
  9. DILITIAZEM ER [Concomitant]
  10. VITAMIN D3 [Concomitant]
     Active Substance: CHOLECALCIFEROL
  11. VALSARTAN. [Suspect]
     Active Substance: VALSARTAN
     Indication: HYPERTENSION
     Route: 048
     Dates: start: 20140712, end: 20140715
  12. FUROSEMIDE. [Concomitant]
     Active Substance: FUROSEMIDE
  13. CALCIUM [Concomitant]
     Active Substance: CALCIUM
  14. DIOVAN [Concomitant]
     Active Substance: VALSARTAN
  15. CELTIC SEA SALT [Concomitant]

REACTIONS (4)
  - Dysphagia [None]
  - Dysphonia [None]
  - Diarrhoea [None]
  - Eating disorder [None]

NARRATIVE: CASE EVENT DATE: 20140712
